FAERS Safety Report 8599180-6 (Version None)
Quarter: 2012Q3

REPORT INFORMATION
  Report Type: 
  Country: None (occurrence: None)
  Receive Date: 20120816
  Receipt Date: 20110803
  Transmission Date: 20120928
  Serious: No
  Sender: FDA-Public Use
  Company Number: US-AMGEN-USASP2011038613

PATIENT
  Age: 75 Year
  Sex: Male
  Weight: 73.016 kg

DRUGS (4)
  1. NPLATE [Suspect]
     Indication: PRODUCT USED FOR UNKNOWN INDICATION
     Dosage: 73 MUG, ONE TIME DOSE
     Route: 058
     Dates: start: 20110718, end: 20110718
  2. ARANESP [Suspect]
     Indication: MYELODYSPLASTIC SYNDROME
     Dosage: UNK
     Dates: start: 20100713
  3. NEUPOGEN [Suspect]
     Indication: PRODUCT USED FOR UNKNOWN INDICATION
     Dosage: UNK
     Dates: start: 20100804
  4. DACOGEN [Concomitant]
     Dosage: UNK

REACTIONS (1)
  - MEDICATION ERROR [None]
